FAERS Safety Report 15325556 (Version 2)
Quarter: 2018Q3

REPORT INFORMATION
  Report Type: Spontaneous
  Country: US (occurrence: US)
  Receive Date: 20180828
  Receipt Date: 20180906
  Transmission Date: 20181010
  Serious: Yes (Hospitalization, Other)
  Sender: FDA-Public Use
  Company Number: US-PFIZER INC-1358609

PATIENT
  Age: 63 Year
  Sex: Male
  Weight: 90 kg

DRUGS (25)
  1. ACETYLCYSTEINE. [Concomitant]
     Active Substance: ACETYLCYSTEINE
     Indication: ACUTE RESPIRATORY DISTRESS SYNDROME
     Dosage: UNK
     Route: 055
  2. ROCURONIUM BROMIDE. [Suspect]
     Active Substance: ROCURONIUM BROMIDE
     Dosage: UNK (CONTINOUS INFUSION)
  3. ALBUTEROL [SALBUTAMOL] [Concomitant]
     Active Substance: ALBUTEROL
     Indication: ACUTE RESPIRATORY DISTRESS SYNDROME
     Dosage: UNK
     Route: 055
  4. EPINEPHRINE. [Concomitant]
     Active Substance: EPINEPHRINE
     Indication: CARDIAC ARREST
     Dosage: UNK
  5. SODIUM CHLORIDE. [Concomitant]
     Active Substance: SODIUM CHLORIDE
     Indication: FLUID REPLACEMENT
     Dosage: UNK
     Route: 041
  6. ROCURONIUM BROMIDE. [Suspect]
     Active Substance: ROCURONIUM BROMIDE
     Dosage: TWO 50MG BOLUS DOSES
  7. DROTRECOGIN ALFA [Concomitant]
     Active Substance: DROTRECOGIN ALFA (ACTIVATED)
     Indication: SEPSIS
     Dosage: 24MCG/KG/HR
     Route: 041
  8. TIGECYCLINE. [Concomitant]
     Active Substance: TIGECYCLINE
     Indication: SEPSIS
     Dosage: 100 MG, DAILY EVERY 24 HOURS
     Route: 042
  9. ROCURONIUM BROMIDE. [Suspect]
     Active Substance: ROCURONIUM BROMIDE
     Indication: MECHANICAL VENTILATION
     Dosage: UNK (8 MCG/KG/MIN)
     Route: 041
  10. AMIODARONE [Concomitant]
     Active Substance: AMIODARONE
     Indication: ATRIAL FIBRILLATION
     Dosage: 150 MG, UNK
     Route: 040
  11. MEROPENEM. [Concomitant]
     Active Substance: MEROPENEM
     Indication: SEPSIS
     Dosage: 500 MG, 3X/DAY EVERY 8 HOURS
     Route: 042
  12. DESFLURANE. [Concomitant]
     Active Substance: DESFLURANE
     Indication: ABDOMINAL OPERATION
     Dosage: UNK
     Route: 055
  13. VASOPRESSIN. [Concomitant]
     Active Substance: VASOPRESSIN
     Dosage: 0.03 UNIT/MIN
     Route: 041
  14. FENTANYL CITRATE. [Concomitant]
     Active Substance: FENTANYL CITRATE
     Indication: MECHANICAL VENTILATION
     Dosage: UNK
     Route: 041
  15. NORADRENALINE [NOREPINEPHRINE] [Concomitant]
     Indication: BLOOD PRESSURE MANAGEMENT
     Dosage: UNK
     Route: 041
  16. VANCOMYCIN HYDROCHLORIDE. [Concomitant]
     Active Substance: VANCOMYCIN HYDROCHLORIDE
     Indication: SEPSIS
     Dosage: 1500 MG, DAILY EVERY 24 HOURS
     Route: 042
  17. ANIDULAFUNGIN [Concomitant]
     Active Substance: ANIDULAFUNGIN
     Indication: SEPSIS
     Dosage: 100 MG, DAILY EVERY 24 HOURS
     Route: 042
  18. TPN [NICOTINAMIDE;PYRIDOXINE HYDROCHLORIDE;TYROSINE] [Concomitant]
     Indication: PARENTERAL NUTRITION
     Dosage: UNK
     Route: 051
  19. AMIODARONE [Concomitant]
     Active Substance: AMIODARONE
     Dosage: 750 MG, UNK
     Route: 041
  20. ATROPINE SULFATE. [Concomitant]
     Active Substance: ATROPINE SULFATE
     Indication: CARDIAC ARREST
     Dosage: UNK
  21. CIPROFLOXACIN. [Concomitant]
     Active Substance: CIPROFLOXACIN
     Indication: SEPSIS
     Dosage: 400 MG, 2X/DAY EVERY 12 HOURS
     Route: 042
  22. LORAZEPAM. [Concomitant]
     Active Substance: LORAZEPAM
     Indication: MECHANICAL VENTILATION
     Dosage: 2 MG/HR CONTINUOUS INFUSION
     Route: 041
  23. DROTRECOGIN ALFA [Concomitant]
     Active Substance: DROTRECOGIN ALFA (ACTIVATED)
     Dosage: UNK (24 MG/KG/HR)
     Route: 041
  24. INSULIN, REGULAR [Concomitant]
     Active Substance: INSULIN NOS
     Indication: DIABETES MELLITUS MANAGEMENT
     Dosage: UNK
     Route: 041
  25. PANTOPRAZOLE [Concomitant]
     Active Substance: PANTOPRAZOLE
     Dosage: 40 MG, DAILY EVERY 24 HOURS
     Route: 042

REACTIONS (3)
  - Product quality issue [Recovered/Resolved]
  - Hyperthermia malignant [Recovered/Resolved]
  - Poor quality drug administered [Recovered/Resolved]
